FAERS Safety Report 9851173 (Version 1)
Quarter: 2014Q1

REPORT INFORMATION
  Report Type: Spontaneous
  Country: US (occurrence: US)
  Receive Date: 20140128
  Receipt Date: 20140128
  Transmission Date: 20141002
  Serious: No
  Sender: FDA-Public Use
  Company Number: US-SANOFI-AVENTIS-2013SA076501

PATIENT
  Age: 46 Year
  Sex: Female

DRUGS (3)
  1. LASIX [Suspect]
     Indication: TYPE 2 DIABETES MELLITUS
     Route: 048
     Dates: start: 20100611, end: 20121201
  2. LASIX [Suspect]
     Route: 048
     Dates: start: 20100611, end: 20121201
  3. NEURONTIN [Suspect]
     Indication: TYPE 2 DIABETES MELLITUS
     Route: 048

REACTIONS (2)
  - Colitis [Recovered/Resolved]
  - Blood potassium decreased [Recovered/Resolved]
